FAERS Safety Report 13795392 (Version 3)
Quarter: 2018Q1

REPORT INFORMATION
  Report Type: Report from Study
  Country: US (occurrence: US)
  Receive Date: 20170726
  Receipt Date: 20180329
  Transmission Date: 20180508
  Serious: Yes (Death, Life-Threatening, Hospitalization, Other)
  Sender: FDA-Public Use
  Company Number: PHHY2017US023566

PATIENT
  Age: 60 Year
  Sex: Female
  Weight: 46.3 kg

DRUGS (6)
  1. PREDNISONE. [Suspect]
     Active Substance: PREDNISONE
     Indication: GRAFT VERSUS HOST DISEASE
     Dosage: 20 MG, BID
     Route: 048
     Dates: start: 20170127, end: 20170202
  2. TACROLIMUS. [Concomitant]
     Active Substance: TACROLIMUS
     Indication: GRAFT VERSUS HOST DISEASE
     Dosage: 1 MG, BID
     Route: 048
     Dates: start: 20161227, end: 20170202
  3. SIROLIMUS. [Concomitant]
     Active Substance: SIROLIMUS
     Indication: GRAFT VERSUS HOST DISEASE
     Dosage: 1.5 MG, QD
     Route: 048
     Dates: start: 20161227
  4. SIROLIMUS. [Concomitant]
     Active Substance: SIROLIMUS
     Dosage: 1.5 MG, QD
     Route: 048
     Dates: start: 20171227
  5. INC424A [Suspect]
     Active Substance: RUXOLITINIB
     Indication: GRAFT VERSUS HOST DISEASE
     Dosage: 10 MG, BID
     Route: 048
     Dates: start: 20170123
  6. TACROLIMUS. [Concomitant]
     Active Substance: TACROLIMUS
     Dosage: 1 MG, BID
     Route: 048
     Dates: start: 20171227

REACTIONS (4)
  - Blindness [Not Recovered/Not Resolved]
  - Fungaemia [Fatal]
  - Respiratory failure [Not Recovered/Not Resolved]
  - Mycotic endophthalmitis [Not Recovered/Not Resolved]

NARRATIVE: CASE EVENT DATE: 20170202
